FAERS Safety Report 22325877 (Version 1)
Quarter: 2023Q2

REPORT INFORMATION
  Report Type: Report from Study
  Country: CR (occurrence: CR)
  Receive Date: 20230516
  Receipt Date: 20230516
  Transmission Date: 20230722
  Serious: Yes (Other)
  Sender: FDA-Public Use
  Company Number: CR-002147023-NVSC2023CR109023

PATIENT
  Age: 76 Year
  Sex: Female

DRUGS (2)
  1. EXFORGE [Suspect]
     Active Substance: AMLODIPINE BESYLATE\VALSARTAN
     Indication: Hypertension
     Dosage: 5/320 MG, QD
     Route: 048
     Dates: start: 2020, end: 202304
  2. DIOVAN [Suspect]
     Active Substance: VALSARTAN
     Indication: Hypertension
     Dosage: 320 MG, QD
     Route: 048
     Dates: start: 20230430

REACTIONS (8)
  - Intraocular pressure increased [Unknown]
  - Hypotension [Not Recovered/Not Resolved]
  - Dizziness [Unknown]
  - Fear [Unknown]
  - Anxiety [Unknown]
  - Pain [Unknown]
  - Pain in extremity [Unknown]
  - Product availability issue [Unknown]

NARRATIVE: CASE EVENT DATE: 20230504
